FAERS Safety Report 14487668 (Version 1)
Quarter: 2018Q1

REPORT INFORMATION
  Report Type: Spontaneous
  Country: CN (occurrence: CN)
  Receive Date: 20180205
  Receipt Date: 20180205
  Transmission Date: 20180509
  Serious: Yes (Other)
  Sender: FDA-Public Use
  Company Number: CN-PFIZER INC-2018046211

PATIENT
  Age: 63 Year
  Sex: Male
  Weight: 50 kg

DRUGS (2)
  1. ASPIRIN BAYER [Concomitant]
     Active Substance: ASPIRIN
     Indication: ANALGESIC THERAPY
     Dosage: 0.1 G, 1X/DAY
     Route: 048
     Dates: start: 20171126, end: 20171201
  2. FRAGMIN [Suspect]
     Active Substance: DALTEPARIN SODIUM
     Indication: THROMBOSIS PROPHYLAXIS
     Dosage: 5000 IU, 1X/DAY
     Dates: start: 20171125, end: 20171129

REACTIONS (2)
  - Haematemesis [Recovering/Resolving]
  - Abdominal pain upper [Recovering/Resolving]

NARRATIVE: CASE EVENT DATE: 20171130
